FAERS Safety Report 6331318-3 (Version None)
Quarter: 2009Q3

REPORT INFORMATION
  Report Type: 
  Country: None (occurrence: None)
  Receive Date: 20090826
  Receipt Date: 20090818
  Transmission Date: 20100115
  Serious: Yes (Disabling)
  Sender: FDA-Public Use
  Company Number: DK-BRACCO-000031

PATIENT
  Sex: Female

DRUGS (2)
  1. CONTRAST MEDIA [Suspect]
     Indication: DIAGNOSTIC PROCEDURE
     Route: 042
     Dates: start: 20010718, end: 20010718
  2. CONTRAST MEDIA [Suspect]
     Route: 042
     Dates: start: 20010719, end: 20010719

REACTIONS (1)
  - NEPHROGENIC SYSTEMIC FIBROSIS [None]
